FAERS Safety Report 23956393 (Version 3)
Quarter: 2024Q4

REPORT INFORMATION
  Report Type: Report from Study
  Country: US (occurrence: US)
  Receive Date: 20240610
  Receipt Date: 20241001
  Transmission Date: 20250115
  Serious: Yes (Hospitalization)
  Sender: SANOFI AVENTIS
  Company Number: US-SA-2024SA168719

PATIENT
  Age: 72 Year
  Sex: Male
  Weight: 125.7 kg

DRUGS (6)
  1. DOCETAXEL [Suspect]
     Active Substance: DOCETAXEL
     Indication: Hormone-refractory prostate cancer
     Dosage: 75 MG/M2, Q3W
     Route: 042
     Dates: start: 20240213, end: 20240213
  2. DOCETAXEL [Suspect]
     Active Substance: DOCETAXEL
     Dosage: 75 MG/M2, Q3W
     Route: 042
     Dates: start: 20240507, end: 20240507
  3. PREDNISONE [Suspect]
     Active Substance: PREDNISONE
     Indication: Hormone-refractory prostate cancer
     Dosage: 5 MG, BID
     Route: 048
     Dates: start: 20240213, end: 20240213
  4. PREDNISONE [Suspect]
     Active Substance: PREDNISONE
     Dosage: 5 MG, BID
     Route: 048
     Dates: start: 20240507, end: 20240507
  5. LORIGERLIMAB [Suspect]
     Active Substance: LORIGERLIMAB
     Indication: Hormone-refractory prostate cancer
     Dosage: 6.000MG/KG Q3W
     Route: 042
     Dates: start: 20240411, end: 20240411
  6. LORIGERLIMAB [Suspect]
     Active Substance: LORIGERLIMAB
     Dosage: 6.000MG/KG Q3W
     Route: 042
     Dates: start: 20240213, end: 20240213

REACTIONS (3)
  - Mental status changes [Recovered/Resolved]
  - Fatigue [Recovered/Resolved]
  - Anaemia [Recovered/Resolved]

NARRATIVE: CASE EVENT DATE: 20240525
